FAERS Safety Report 11784503 (Version 11)
Quarter: 2018Q3

REPORT INFORMATION
  Report Type: Spontaneous
  Country: CA (occurrence: CA)
  Receive Date: 20151129
  Receipt Date: 20180905
  Transmission Date: 20181010
  Serious: Yes (Other)
  Sender: FDA-Public Use
  Company Number: CA-ROCHE-1666156

PATIENT
  Age: 64 Year
  Sex: Male

DRUGS (9)
  1. XOLAIR [Suspect]
     Active Substance: OMALIZUMAB
     Indication: ASTHMA
     Route: 058
     Dates: start: 20150623
  2. SYMBICORT [Concomitant]
     Active Substance: BUDESONIDE\FORMOTEROL FUMARATE DIHYDRATE
     Indication: PRODUCT USED FOR UNKNOWN INDICATION
     Route: 065
  3. VALTREX [Concomitant]
     Active Substance: VALACYCLOVIR HYDROCHLORIDE
     Indication: PROSTATIC DISORDER
     Route: 065
  4. XOLAIR [Suspect]
     Active Substance: OMALIZUMAB
     Route: 058
     Dates: start: 20170301
  5. XOLAIR [Suspect]
     Active Substance: OMALIZUMAB
     Route: 058
     Dates: start: 20170508
  6. XOLAIR [Suspect]
     Active Substance: OMALIZUMAB
     Route: 058
     Dates: start: 20170201
  7. SPIRIVA [Suspect]
     Active Substance: TIOTROPIUM BROMIDE MONOHYDRATE
     Indication: PRODUCT USED FOR UNKNOWN INDICATION
     Route: 065
  8. XOLAIR [Suspect]
     Active Substance: OMALIZUMAB
     Route: 058
     Dates: start: 20170913
  9. XOLAIR [Suspect]
     Active Substance: OMALIZUMAB
     Route: 058
     Dates: start: 20160307

REACTIONS (31)
  - Pneumonia [Unknown]
  - Hyperphagia [Unknown]
  - Weight increased [Unknown]
  - Blood blister [Unknown]
  - Inguinal hernia [Unknown]
  - Eating disorder [Unknown]
  - Peripheral swelling [Unknown]
  - Sensitivity to weather change [Unknown]
  - Bladder obstruction [Unknown]
  - Asthma [Unknown]
  - Rales [Unknown]
  - Feeling cold [Unknown]
  - Exercise tolerance increased [Unknown]
  - Asthma [Recovering/Resolving]
  - Cough [Unknown]
  - Weight fluctuation [Unknown]
  - Sensory loss [Unknown]
  - Dyspnoea [Unknown]
  - Hiatus hernia [Unknown]
  - Feeling abnormal [Unknown]
  - Speech disorder [Unknown]
  - Asthenia [Recovering/Resolving]
  - Hypoventilation [Unknown]
  - Fatigue [Unknown]
  - Fungal infection [Unknown]
  - Temperature intolerance [Unknown]
  - Obstructive airways disorder [Unknown]
  - Wheezing [Unknown]
  - Gait disturbance [Unknown]
  - Pulmonary pain [Recovering/Resolving]
  - Erythema [Unknown]

NARRATIVE: CASE EVENT DATE: 20150825
